FAERS Safety Report 4470763-8 (Version None)
Quarter: 2004Q4

REPORT INFORMATION
  Report Type: 
  Country: None (occurrence: None)
  Receive Date: 20041006
  Receipt Date: 20041006
  Transmission Date: 20050328
  Serious: Yes (Other)
  Sender: FDA-Public Use
  Company Number: None

PATIENT
  Age: 34 Year
  Sex: Female
  Weight: 82.1011 kg

DRUGS (2)
  1. EFFEXOR XR [Suspect]
     Indication: ANXIETY
     Dosage: 1 CAPSULE 1 A DAY ORAL
     Route: 048
     Dates: start: 20040101, end: 20041001
  2. EFFEXOR XR [Suspect]
     Indication: MOOD SWINGS
     Dosage: 1 CAPSULE 1 A DAY ORAL
     Route: 048
     Dates: start: 20040101, end: 20041001

REACTIONS (2)
  - DEPRESSION [None]
  - DRUG WITHDRAWAL SYNDROME [None]
